FAERS Safety Report 10094084 (Version 1)
Quarter: 2014Q2

REPORT INFORMATION
  Report Type: Spontaneous
  Country: US (occurrence: US)
  Receive Date: 20140422
  Receipt Date: 20140422
  Transmission Date: 20141212
  Serious: No
  Sender: FDA-Public Use
  Company Number: US-009507513-1404USA009139

PATIENT
  Sex: 0
  Weight: 74.38 kg

DRUGS (1)
  1. NEXPLANON [Suspect]
     Dosage: DOSE-1 ROD/3YEARS
     Route: 059

REACTIONS (4)
  - Device difficult to use [Unknown]
  - Device difficult to use [Unknown]
  - Product quality issue [Unknown]
  - No adverse event [Unknown]
